FAERS Safety Report 8216841-9 (Version None)
Quarter: 2012Q1

REPORT INFORMATION
  Report Type: 
  Country: None (occurrence: None)
  Receive Date: 20120316
  Receipt Date: 20120312
  Transmission Date: 20120608
  Serious: Yes (Life-Threatening, Hospitalization, Other)
  Sender: FDA-Public Use
  Company Number: BR-ASTRAZENECA-2011SE52313

PATIENT
  Age: 78 Year
  Sex: Male
  Weight: 80 kg

DRUGS (12)
  1. AMARYL [Concomitant]
     Dosage: TWO TIMES A DAY
     Route: 048
     Dates: start: 20050101
  2. ATACAND HCT [Suspect]
     Indication: HYPERTENSION
     Dosage: 16/12.5 MG DAILY
     Route: 048
     Dates: start: 20061101, end: 20110701
  3. ATORVASTATIN [Concomitant]
     Dosage: DAILY
     Route: 048
     Dates: start: 20050101
  4. ATACAND HCT [Suspect]
     Dosage: 8/12.5 MG DAILY
     Route: 048
     Dates: start: 20110701
  5. SUSTRAT [Concomitant]
     Dosage: TWO TIMES A DAY
     Route: 048
     Dates: start: 20050101
  6. OMEPRAZOLE [Concomitant]
     Route: 048
     Dates: start: 20050101
  7. ASPIRIN [Concomitant]
     Dosage: DAILY
     Route: 048
     Dates: start: 20050101
  8. ESPIRONOLACTONE [Concomitant]
     Dosage: DAILY
     Route: 048
     Dates: start: 20050101
  9. ALLOPURINOL [Concomitant]
     Route: 048
     Dates: start: 20050101
  10. CARVEDILOL [Concomitant]
     Dosage: TWO TIMES A DAY
     Route: 048
     Dates: start: 20050101
  11. LEVOTHYROXINE SODIUM [Concomitant]
     Dosage: DAILY
     Route: 048
     Dates: start: 20050101
  12. FUROSEMIDE [Concomitant]
     Dosage: TWO TIMES A DAY
     Route: 048
     Dates: start: 20050101

REACTIONS (4)
  - RENAL FAILURE [None]
  - HYPOTENSION [None]
  - DIABETES MELLITUS INADEQUATE CONTROL [None]
  - CARDIAC FAILURE [None]
